FAERS Safety Report 5013898-3 (Version None)
Quarter: 2006Q2

REPORT INFORMATION
  Report Type: 
  Country: None (occurrence: None)
  Receive Date: 20060525
  Receipt Date: 20060512
  Transmission Date: 20061013
  Serious: Yes (Hospitalization)
  Sender: FDA-Public Use
  Company Number: 2006053786

PATIENT
  Age: 72 Year
  Sex: Female
  Weight: 31 kg

DRUGS (7)
  1. IRINOTECAN HCL [Suspect]
     Indication: PANCREATIC CARCINOMA
     Dosage: SEE IMAGE
     Route: 042
     Dates: start: 20050830, end: 20050830
  2. IRINOTECAN HCL [Suspect]
     Indication: PANCREATIC CARCINOMA
     Dosage: SEE IMAGE
     Route: 042
     Dates: start: 20050906, end: 20050906
  3. IRINOTECAN HCL [Suspect]
     Indication: PANCREATIC CARCINOMA
     Dosage: SEE IMAGE
     Route: 042
     Dates: start: 20051228, end: 20051228
  4. PN TWIN (AMINO ACIDS NOS, CARBOHYDRATES NOS, ELECTROLYTES NOS) [Concomitant]
  5. ELEMENMIC (MINERALS NOS) [Concomitant]
  6. INTRALIPID (GLYCEROL, LECITHIN, SOYA OIL) [Concomitant]
  7. DECADRON SRC [Concomitant]

REACTIONS (6)
  - BONE MARROW FAILURE [None]
  - DISSEMINATED INTRAVASCULAR COAGULATION [None]
  - HEPATIC STEATOSIS [None]
  - MALIGNANT NEOPLASM PROGRESSION [None]
  - PANCREATIC CARCINOMA METASTATIC [None]
  - SEPSIS [None]
